FAERS Safety Report 10077296 (Version 2)
Quarter: 2014Q2

REPORT INFORMATION
  Report Type: Spontaneous
  Country: US (occurrence: US)
  Receive Date: 20140414
  Receipt Date: 20140414
  Transmission Date: 20141212
  Serious: No
  Sender: FDA-Public Use
  Company Number: US-BANPHARM-20131276

PATIENT
  Age: 2 Year
  Sex: Female
  Weight: 12.25 kg

DRUGS (3)
  1. ALEVE LIQUID GELS 220 MG [Suspect]
     Dosage: 1-2 DF, ONCE,
     Route: 048
     Dates: start: 20130428, end: 20130428
  2. CIPROFLOXACIN [Concomitant]
  3. SODIUM CITRATE [Concomitant]

REACTIONS (2)
  - Accidental exposure to product by child [Unknown]
  - Dizziness [Recovered/Resolved]
